FAERS Safety Report 7809139-1 (Version None)
Quarter: 2011Q4

REPORT INFORMATION
  Report Type: 
  Country: None (occurrence: None)
  Receive Date: 20111012
  Receipt Date: 20111003
  Transmission Date: 20120403
  Serious: Yes (Hospitalization)
  Sender: FDA-Public Use
  Company Number: US-GENZYME-FABR-1002139

PATIENT

DRUGS (2)
  1. FABRAZYME [Suspect]
     Indication: FABRY'S DISEASE
     Dosage: 0.53 MG/KG, Q2W
     Route: 042
     Dates: start: 20090707
  2. FABRAZYME [Suspect]
     Dosage: 1.1 MG/KG, Q2W
     Route: 042
     Dates: start: 20040201, end: 20090707

REACTIONS (3)
  - GASTROENTERITIS [None]
  - PAIN [None]
  - PYREXIA [None]
